FAERS Safety Report 23827498 (Version 2)
Quarter: 2024Q2

REPORT INFORMATION
  Report Type: Spontaneous
  Country: DE (occurrence: None)
  Receive Date: 20240507
  Receipt Date: 20240628
  Transmission Date: 20240716
  Serious: Yes (Other)
  Sender: FDA-Public Use
  Company Number: 2024A102224

PATIENT
  Sex: Male

DRUGS (6)
  1. DURVALUMAB\TREMELIMUMAB [Suspect]
     Active Substance: DURVALUMAB\TREMELIMUMAB
  2. MITOMYCIN C [Suspect]
     Active Substance: MITOMYCIN
  3. BEVACIZUMAB [Suspect]
     Active Substance: BEVACIZUMAB
  4. ATEZOLIZUMAB [Suspect]
     Active Substance: ATEZOLIZUMAB
  5. LENVATINIB [Suspect]
     Active Substance: LENVATINIB
  6. ATEZOLIZUMAB [Suspect]
     Active Substance: ATEZOLIZUMAB

REACTIONS (6)
  - Disease progression [Unknown]
  - Palmar-plantar erythrodysaesthesia syndrome [Unknown]
  - Gastrointestinal disorder [Unknown]
  - Impaired healing [Unknown]
  - Wound [Unknown]
  - Off label use [Unknown]
